FAERS Safety Report 9457563 (Version 1)
Quarter: 2013Q3

REPORT INFORMATION
  Report Type: Spontaneous
  Country: US (occurrence: None)
  Receive Date: 20130812
  Receipt Date: 20130812
  Transmission Date: 20140515
  Serious: Yes (Hospitalization)
  Sender: FDA-Public Use
  Company Number: None

PATIENT
  Age: 77 Year
  Sex: Female
  Weight: 79.9 kg

DRUGS (4)
  1. BORTEZOMIB [Suspect]
     Indication: DIFFUSE LARGE B-CELL LYMPHOMA
     Route: 042
     Dates: start: 20130312, end: 20130626
  2. BORTEZOMIB [Suspect]
     Indication: DRUG THERAPY
     Route: 042
     Dates: start: 20130312, end: 20130626
  3. TEMSIROLIMUS [Suspect]
     Route: 042
     Dates: start: 20130312, end: 20130626
  4. TEMSIROLIMUS [Suspect]
     Route: 042
     Dates: start: 20130312, end: 20130626

REACTIONS (6)
  - Tremor [None]
  - Chills [None]
  - Pyrexia [None]
  - Renal failure acute [None]
  - Hydronephrosis [None]
  - Disease progression [None]
